FAERS Safety Report 22309190 (Version 1)
Quarter: 2023Q2

REPORT INFORMATION
  Report Type: Spontaneous
  Country: US (occurrence: None)
  Receive Date: 20230511
  Receipt Date: 20230511
  Transmission Date: 20230722
  Serious: No
  Sender: FDA-Public Use
  Company Number: US-ROCHE-3256267

PATIENT
  Sex: Male

DRUGS (1)
  1. OCREVUS [Suspect]
     Active Substance: OCRELIZUMAB
     Indication: Product used for unknown indication
     Route: 065

REACTIONS (7)
  - Malaise [Unknown]
  - Headache [Unknown]
  - Nausea [Unknown]
  - Gastrointestinal disorder [Unknown]
  - Ear pain [Unknown]
  - Drug intolerance [Unknown]
  - Asthenia [Unknown]
